FAERS Safety Report 18340866 (Version 1)
Quarter: 2020Q4

REPORT INFORMATION
  Report Type: Spontaneous
  Country: DE (occurrence: DE)
  Receive Date: 20201003
  Receipt Date: 20201003
  Transmission Date: 20210113
  Serious: Yes (Death, Hospitalization, Other)
  Sender: FDA-Public Use
  Company Number: DE-AUROBINDO-AUR-APL-2020-050173

PATIENT
  Age: 96 Year
  Sex: Female

DRUGS (3)
  1. TORASEMID [Concomitant]
     Active Substance: TORSEMIDE
     Indication: OEDEMA
     Dosage: 10 MILLIGRAM
     Route: 065
  2. RAMIPRIL. [Suspect]
     Active Substance: RAMIPRIL
     Indication: HYPERTENSION
     Dosage: 2.5 MILLIGRAM
     Route: 048
  3. RAMIPRIL. [Suspect]
     Active Substance: RAMIPRIL
     Dosage: 5 MILLIGRAM
     Route: 048
     Dates: end: 20200729

REACTIONS (5)
  - Taste disorder [Unknown]
  - Glossitis [Unknown]
  - Clavicle fracture [Unknown]
  - Delirium [Fatal]
  - Fall [Recovered/Resolved]

NARRATIVE: CASE EVENT DATE: 202007
